FAERS Safety Report 5003448-X (Version None)
Quarter: 2006Q1

REPORT INFORMATION
  Report Type: 
  Country: None (occurrence: None)
  Receive Date: 20060317
  Receipt Date: 20051220
  Transmission Date: 20060701
  Serious: Yes (Other)
  Sender: FDA-Public Use
  Company Number: US-JNJFOC-20051204890

PATIENT
  Age: 23 Year
  Sex: Female
  Weight: 74.8435 kg

DRUGS (2)
  1. ORTHO EVRA [Suspect]
     Indication: CONTRACEPTION
     Dosage: 1 DOSE(S), 3 IN 4 WEEK, TRANSDERMAL
     Route: 062
     Dates: start: 20010101
  2. ORTHO EVRA [Suspect]
     Indication: DYSMENORRHOEA
     Dosage: 1 DOSE(S), 3 IN 4 WEEK, TRANSDERMAL
     Route: 062
     Dates: start: 20010101

REACTIONS (2)
  - CHOLECYSTECTOMY [None]
  - METRORRHAGIA [None]
